FAERS Safety Report 12696412 (Version 1)
Quarter: 2016Q3

REPORT INFORMATION
  Report Type: Report from Study
  Country: CA (occurrence: CA)
  Receive Date: 20160830
  Receipt Date: 20160830
  Transmission Date: 20161109
  Serious: Yes (Hospitalization)
  Sender: FDA-Public Use
  Company Number: CA-AMGEN-CANSL2016111830

PATIENT
  Age: 70 Year
  Sex: Female

DRUGS (1)
  1. PROLIA [Suspect]
     Active Substance: DENOSUMAB
     Indication: PRODUCT USED FOR UNKNOWN INDICATION
     Dosage: 60 MG/ML, UNK
     Route: 065
     Dates: start: 20110809

REACTIONS (7)
  - Bronchitis [Unknown]
  - Gastritis [Unknown]
  - Gastric disorder [Unknown]
  - Gastrooesophageal reflux disease [Unknown]
  - Bone pain [Unknown]
  - Oesophagitis [Unknown]
  - Limb discomfort [Unknown]

NARRATIVE: CASE EVENT DATE: 2012
